FAERS Safety Report 11431790 (Version 11)
Quarter: 2018Q3

REPORT INFORMATION
  Report Type: Spontaneous
  Country: US (occurrence: US)
  Receive Date: 20150828
  Receipt Date: 20180918
  Transmission Date: 20181010
  Serious: Yes (Hospitalization)
  Sender: FDA-Public Use
  Company Number: US-PFIZER INC-2015284148

PATIENT
  Age: 60 Year
  Sex: Female
  Weight: 62.49 kg

DRUGS (13)
  1. FLUTICASONE PROPIONATE. [Concomitant]
     Active Substance: FLUTICASONE PROPIONATE
     Indication: BRONCHITIS
     Dosage: UNK UNK, 2X/DAY [50 MCG/ACT,USE 1 SPRAY IN EACH NOSTRIL TWICE DAILY]
     Route: 045
     Dates: start: 20160425
  2. LISINOPRIL. [Concomitant]
     Active Substance: LISINOPRIL
     Indication: TYPE 2 DIABETES MELLITUS
     Dosage: 20 MG, DAILY
     Route: 048
     Dates: start: 20160803
  3. LYRICA [Suspect]
     Active Substance: PREGABALIN
     Dosage: 225 MG, UNK
     Route: 048
  4. IBUPROFEN. [Concomitant]
     Active Substance: IBUPROFEN
     Indication: ARTHRALGIA
     Dosage: 800 MG, AS NEEDED [THREE TIMES A DAY]
     Route: 048
     Dates: start: 20150303
  5. LEVOTHYROXINE SODIUM. [Concomitant]
     Active Substance: LEVOTHYROXINE SODIUM
     Indication: HYPOTHYROIDISM
     Dosage: 75 UG, DAILY
     Route: 048
     Dates: start: 20150201
  6. TRAMADOL HCL [Concomitant]
     Active Substance: TRAMADOL HYDROCHLORIDE
     Indication: ARTHRITIS
     Dosage: UNK, AS NEEDED [50 MG TAB, TAKE 1 OR 2 TABLETS BY MOUTH EVERY 6 TO 8 HOURS]
     Route: 048
  7. TRAMADOL HCL [Concomitant]
     Active Substance: TRAMADOL HYDROCHLORIDE
     Indication: ARTHRALGIA
     Dosage: 2 DF, 4X/DAY (EVERY 6 HOURS )
  8. VITAMIN B12 [Concomitant]
     Active Substance: CYANOCOBALAMIN
     Indication: VITAMIN B12 DEFICIENCY
     Dosage: 500 UG, DAILY
     Route: 048
     Dates: start: 20161012
  9. PROVENTIL HFA [Concomitant]
     Active Substance: ALBUTEROL SULFATE
     Indication: BRONCHITIS
     Dosage: UNK, AS NEEDED [108 (90 BASE) MCG/ ACT: INHALE 2 PUFFS EVERY 4?6 HOURS ]
     Route: 055
     Dates: start: 20160425
  10. METFORMIN HCL [Concomitant]
     Active Substance: METFORMIN HYDROCHLORIDE
     Indication: TYPE 2 DIABETES MELLITUS
     Dosage: 1000 MG, 2X/DAY
     Route: 048
     Dates: start: 20160816
  11. VITAMIN D [Concomitant]
     Active Substance: CHOLECALCIFEROL
     Indication: VITAMIN D DEFICIENCY
     Dosage: 2000 IU, DAILY
     Route: 048
     Dates: start: 20160506
  12. LYRICA [Suspect]
     Active Substance: PREGABALIN
     Indication: DIABETIC NEUROPATHY
     Dosage: 225 MG, TWICE DAILY (SAMPLES OF PREGABALIN 75 MG, TAKE 3 IN AM AND 3 IN PM)
     Route: 048
  13. CIPROFLOXACIN HCL [Concomitant]
     Active Substance: CIPROFLOXACIN HYDROCHLORIDE
     Indication: URINARY TRACT INFECTION
     Dosage: 250 MG, 2X/DAY [TAKE 1 TABLET EVERY 12 HOURS DAILY]
     Route: 048
     Dates: start: 20170201

REACTIONS (8)
  - Prescribed overdose [Unknown]
  - Condition aggravated [Unknown]
  - Pollakiuria [Unknown]
  - Urinary tract infection [Unknown]
  - Urine odour abnormal [Unknown]
  - Amyotrophy [Unknown]
  - Arthralgia [Unknown]
  - Chromaturia [Unknown]
